FAERS Safety Report 22197467 (Version 2)
Quarter: 2023Q2

REPORT INFORMATION
  Report Type: Spontaneous
  Country: JP (occurrence: JP)
  Receive Date: 20230411
  Receipt Date: 20230517
  Transmission Date: 20230722
  Serious: Yes (Other)
  Sender: FDA-Public Use
  Company Number: JP-CHUGAI-2023012894

PATIENT
  Age: 6 Decade
  Sex: Male

DRUGS (2)
  1. TECENTRIQ [Suspect]
     Active Substance: ATEZOLIZUMAB
     Indication: Non-small cell lung cancer
     Dosage: 1200 MILLIGRAM, SINGLE
     Route: 041
     Dates: start: 20230306, end: 20230306
  2. METHOTREXATE [Concomitant]
     Active Substance: METHOTREXATE
     Indication: Non-small cell lung cancer
     Dosage: UNK
     Route: 048

REACTIONS (1)
  - Liver disorder [Recovered/Resolved]
